FAERS Safety Report 19621696 (Version 1)
Quarter: 2021Q3

REPORT INFORMATION
  Report Type: Other
  Country: US (occurrence: US)
  Receive Date: 20210728
  Receipt Date: 20210728
  Transmission Date: 20211014
  Serious: Yes (Other)
  Sender: FDA-Public Use
  Company Number: US-APOTEX-2021AP024461

PATIENT
  Age: 69 Year
  Sex: Male

DRUGS (1)
  1. RANITIDINE TABLETS [Suspect]
     Active Substance: RANITIDINE HYDROCHLORIDE
     Indication: GASTROOESOPHAGEAL REFLUX DISEASE
     Dosage: DAILY
     Route: 065
     Dates: start: 200504, end: 201906

REACTIONS (5)
  - Colorectal cancer [Not Recovered/Not Resolved]
  - Renal cancer [Not Recovered/Not Resolved]
  - Prostate cancer [Not Recovered/Not Resolved]
  - Skin cancer [Unknown]
  - Oesophageal carcinoma [Not Recovered/Not Resolved]

NARRATIVE: CASE EVENT DATE: 20021201
